FAERS Safety Report 16344027 (Version 1)
Quarter: 2019Q2

REPORT INFORMATION
  Report Type: Spontaneous
  Country: FR (occurrence: FR)
  Receive Date: 20190522
  Receipt Date: 20190522
  Transmission Date: 20190711
  Serious: Yes (Death, Hospitalization, Other)
  Sender: FDA-Public Use
  Company Number: FR-PFIZER INC-2019217430

PATIENT
  Age: 94 Year
  Sex: Male
  Weight: 74.6 kg

DRUGS (10)
  1. AUGMENTIN [Concomitant]
     Active Substance: AMOXICILLIN\CLAVULANATE POTASSIUM
     Dosage: 2 DF, 1X/DAY
     Route: 048
     Dates: start: 20190129, end: 20190131
  2. IMETH [Suspect]
     Active Substance: METHOTREXATE SODIUM
     Indication: PEMPHIGOID
     Dosage: 2.1429 MG (15 MG,1 IN 1 WK)
     Route: 048
     Dates: start: 20181203, end: 20190128
  3. COLCHICINE OPOCALCIUM [Interacting]
     Active Substance: COLCHICINE
     Indication: CHONDROCALCINOSIS
     Dosage: 1 MG, 1X/DAY
     Route: 048
     Dates: end: 20190131
  4. DECAPEPTYL (ACETATE) [Concomitant]
     Active Substance: TRIPTORELIN ACETATE
     Dosage: 4 DF, CYCLIC (4 DOSAGE FORMS PER 1 YEAR)
     Route: 058
  5. XATRAL [ALFUZOSIN HYDROCHLORIDE] [Concomitant]
     Active Substance: ALFUZOSIN
     Dosage: 5 MG, 1X/DAY
     Route: 048
     Dates: end: 20190131
  6. LASILIX [FUROSEMIDE] [Concomitant]
     Active Substance: FUROSEMIDE
     Dosage: 20 MG, 1X/DAY
     Route: 048
  7. DERMOVAL [CLOBETASOL PROPIONATE] [Concomitant]
     Dosage: UNK
     Route: 061
     Dates: start: 201812
  8. UVEDOSE [Concomitant]
     Active Substance: CHOLECALCIFEROL
     Dosage: 2 DF, 1X/DAY
     Route: 048
     Dates: start: 201812, end: 20190131
  9. COUMADINE [Concomitant]
     Active Substance: WARFARIN SODIUM
     Indication: ATRIAL FIBRILLATION
     Dosage: 3.5 MG, 1X/DAY
     Route: 048
     Dates: end: 20190131
  10. SPECIAFOLDINE [Concomitant]
     Active Substance: FOLIC ACID
     Dosage: 6 DF, WEEKLY
     Route: 048
     Dates: start: 201812, end: 20190131

REACTIONS (6)
  - Bone marrow failure [Fatal]
  - Neutropenia [Fatal]
  - Product use in unapproved indication [Unknown]
  - Influenza [Fatal]
  - Thrombocytopenia [Fatal]
  - Drug interaction [Unknown]

NARRATIVE: CASE EVENT DATE: 20181203
